FAERS Safety Report 6735411-2 (Version None)
Quarter: 2010Q2

REPORT INFORMATION
  Report Type: 
  Country: None (occurrence: None)
  Receive Date: 20100521
  Receipt Date: 20100519
  Transmission Date: 20101027
  Serious: Yes (Other)
  Sender: FDA-Public Use
  Company Number: US-TEVA-235167USA

PATIENT
  Sex: Female

DRUGS (1)
  1. BENAZEPRIL HYDROCHLORIDE [Suspect]

REACTIONS (4)
  - PYREXIA [None]
  - RECTAL HAEMORRHAGE [None]
  - SWELLING [None]
  - THROMBOSIS [None]
